FAERS Safety Report 8389755-1 (Version None)
Quarter: 2012Q2

REPORT INFORMATION
  Report Type: 
  Country: None (occurrence: None)
  Receive Date: 20120529
  Receipt Date: 20120514
  Transmission Date: 20120825
  Serious: Yes (Hospitalization, Disabling)
  Sender: FDA-Public Use
  Company Number: US-BAYER-2012-047438

PATIENT
  Sex: Female

DRUGS (2)
  1. YASMIN [Suspect]
     Dosage: UNK
     Dates: start: 20080201, end: 20081101
  2. DROSPIRENONE AND ETHINYL ESTRADIOL [Suspect]
     Dosage: UNK
     Dates: start: 20080201, end: 20081101

REACTIONS (7)
  - ANHEDONIA [None]
  - DEFORMITY [None]
  - PAIN [None]
  - RETINAL VASCULAR THROMBOSIS [None]
  - ANXIETY [None]
  - INJURY [None]
  - BLINDNESS [None]
